FAERS Safety Report 21178722 (Version 6)
Quarter: 2025Q1

REPORT INFORMATION
  Report Type: Report from Study
  Country: US (occurrence: US)
  Receive Date: 20220805
  Receipt Date: 20250114
  Transmission Date: 20250409
  Serious: Yes (Other)
  Sender: JAZZ
  Company Number: US-JAZZ-2022-US-022648

PATIENT
  Sex: Female

DRUGS (52)
  1. XYREM [Suspect]
     Active Substance: SODIUM OXYBATE
     Indication: Narcolepsy
     Dosage: 2.25 GRAM, BID
  2. XYREM [Suspect]
     Active Substance: SODIUM OXYBATE
  3. DEXEDRINE [Concomitant]
     Active Substance: DEXTROAMPHETAMINE SULFATE
     Indication: Product used for unknown indication
     Dates: start: 20151210
  4. RETIN-A [Concomitant]
     Active Substance: TRETINOIN
     Indication: Product used for unknown indication
     Dates: start: 20151210
  5. XANAX [Concomitant]
     Active Substance: ALPRAZOLAM
     Indication: Product used for unknown indication
     Dates: start: 20151210
  6. SELENIUM [Concomitant]
     Active Substance: SELENIUM
     Indication: Product used for unknown indication
     Dosage: UNK, QD
     Dates: start: 20151210
  7. GRAPESEED [Concomitant]
     Indication: Product used for unknown indication
     Dates: start: 20151210
  8. BIOTIN [Concomitant]
     Active Substance: BIOTIN
     Indication: Product used for unknown indication
     Dosage: UNK, QD
     Dates: start: 20151210
  9. ACETYLCYSTEINE [Concomitant]
     Active Substance: ACETYLCYSTEINE
     Indication: Product used for unknown indication
     Dates: start: 20151210
  10. VITAMIN D3 [Concomitant]
     Active Substance: CHOLECALCIFEROL
     Indication: Product used for unknown indication
     Dates: start: 20151210
  11. PLAQUENIL [Concomitant]
     Active Substance: HYDROXYCHLOROQUINE SULFATE
     Indication: Product used for unknown indication
     Dates: start: 20151210
  12. COENZYME Q10 [Concomitant]
     Active Substance: DIETARY SUPPLEMENT\UBIDECARENONE
     Indication: Product used for unknown indication
     Dates: start: 20151210
  13. EPIPEN [Concomitant]
     Active Substance: EPINEPHRINE
     Indication: Product used for unknown indication
     Dates: start: 20151217
  14. ALPRAZOLAM [Concomitant]
     Active Substance: ALPRAZOLAM
     Indication: Product used for unknown indication
     Dates: start: 20050221
  15. PROVENTIL HFA [Concomitant]
     Active Substance: ALBUTEROL SULFATE
     Indication: Product used for unknown indication
     Dates: start: 20181130
  16. NARCAN [Concomitant]
     Active Substance: NALOXONE HYDROCHLORIDE
     Indication: Product used for unknown indication
     Dates: start: 20200301
  17. SYNTHROID [Concomitant]
     Active Substance: LEVOTHYROXINE SODIUM
     Indication: Product used for unknown indication
     Dates: start: 20210810
  18. ADDERALL [Concomitant]
     Active Substance: AMPHETAMINE ASPARTATE\AMPHETAMINE SULFATE\DEXTROAMPHETAMINE SACCHARATE\DEXTROAMPHETAMINE SULFATE
     Indication: Product used for unknown indication
     Dates: start: 20210301
  19. LIDOCAINE [Concomitant]
     Active Substance: LIDOCAINE
     Indication: Product used for unknown indication
     Dates: start: 20210803
  20. OMEPRAZOLE [Concomitant]
     Active Substance: OMEPRAZOLE
     Indication: Product used for unknown indication
  21. ALBUTEROL SULFATE [Concomitant]
     Active Substance: ALBUTEROL SULFATE
     Indication: Dyspnoea
  22. BACLOFEN [Concomitant]
     Active Substance: BACLOFEN
     Indication: Muscle spasms
     Dosage: 20 MILLIGRAM, BID
  23. CEPHALEXIN [Concomitant]
     Active Substance: CEPHALEXIN
     Indication: Product used for unknown indication
  24. VITAMIN B12 [Concomitant]
     Active Substance: CYANOCOBALAMIN
     Indication: Product used for unknown indication
  25. DAYVIGO [Concomitant]
     Active Substance: LEMBOREXANT
     Indication: Product used for unknown indication
     Dosage: 10 MILLIGRAM, QD
     Route: 048
  26. DEXTROAMPHETAMINE SACCHARATE, AMPHETAMINE ASPARTATE, DEXTROAMPHETAMINE [Concomitant]
     Active Substance: AMPHETAMINE ASPARTATE\AMPHETAMINE SULFATE\DEXTROAMPHETAMINE SACCHARATE\DEXTROAMPHETAMINE SULFATE
     Dosage: 10 MILLIGRAM, BID
     Route: 048
  27. DEXTROAMPHETAMINE SACCHARATE, AMPHETAMINE ASPARTATE, DEXTROAMPHETAMINE [Concomitant]
     Active Substance: AMPHETAMINE ASPARTATE\AMPHETAMINE SULFATE\DEXTROAMPHETAMINE SACCHARATE\DEXTROAMPHETAMINE SULFATE
     Dosage: 10 MILLIGRAM, QD
     Route: 048
  28. DOXEPIN [Concomitant]
     Active Substance: DOXEPIN
     Indication: Product used for unknown indication
     Dosage: 50 MILLIGRAM, QD
     Route: 048
  29. EPINEPHRINE [Concomitant]
     Active Substance: EPINEPHRINE
     Indication: Product used for unknown indication
  30. VITAMIN D2 [Concomitant]
     Active Substance: ERGOCALCIFEROL
     Indication: Product used for unknown indication
  31. ESTRING [Concomitant]
     Active Substance: ESTRADIOL
     Indication: Product used for unknown indication
  32. FAMOTIDINE [Concomitant]
     Active Substance: FAMOTIDINE
     Indication: Product used for unknown indication
  33. FAMOTIDINE [Concomitant]
     Active Substance: FAMOTIDINE
  34. FLUTICASONE PROPIONATE [Concomitant]
     Active Substance: FLUTICASONE PROPIONATE
     Indication: Product used for unknown indication
  35. HYDROMORPHONE [Concomitant]
     Active Substance: HYDROMORPHONE
     Indication: Pain
  36. LACTULOSE [Concomitant]
     Active Substance: LACTULOSE
     Indication: Constipation
     Dosage: 30 MILLILITER, QD
  37. LEVOTHYROXINE [Concomitant]
     Active Substance: LEVOTHYROXINE
     Indication: Product used for unknown indication
  38. LIOTHYRONINE [Concomitant]
     Active Substance: LIOTHYRONINE
     Indication: Product used for unknown indication
  39. LORAZEPAM [Concomitant]
     Active Substance: LORAZEPAM
     Indication: Insomnia
  40. LORAZEPAM [Concomitant]
     Active Substance: LORAZEPAM
     Indication: Anxiety
  41. METHYLPREDNISOLONE [Concomitant]
     Active Substance: METHYLPREDNISOLONE
     Indication: Product used for unknown indication
  42. MONTELUKAST [Concomitant]
     Active Substance: MONTELUKAST
  43. OMEPRAZOLE [Concomitant]
     Active Substance: OMEPRAZOLE
     Indication: Product used for unknown indication
  44. PANTOPRAZOLE [Concomitant]
     Active Substance: PANTOPRAZOLE
     Indication: Product used for unknown indication
  45. ROSUVASTATIN [Concomitant]
     Active Substance: ROSUVASTATIN
     Indication: Product used for unknown indication
  46. SELENIUM SULFIDE [Concomitant]
     Active Substance: SELENIUM SULFIDE
     Indication: Product used for unknown indication
  47. SERTRALINE HYDROCHLORIDE [Concomitant]
     Active Substance: SERTRALINE HYDROCHLORIDE
     Indication: Product used for unknown indication
  48. TIZANIDINE [Concomitant]
     Active Substance: TIZANIDINE
     Indication: Product used for unknown indication
  49. ZIPRASIDONE [Concomitant]
     Active Substance: ZIPRASIDONE
     Indication: Product used for unknown indication
     Dosage: 40 MILLIGRAM, QD
     Route: 048
  50. MOMETASONE [Concomitant]
     Active Substance: MOMETASONE
  51. KEFLEX [Concomitant]
     Active Substance: CEPHALEXIN
  52. CRESTOR [Concomitant]
     Active Substance: ROSUVASTATIN CALCIUM
     Indication: Blood cholesterol

REACTIONS (9)
  - Hallucination [Unknown]
  - Multiple fractures [Unknown]
  - Hypothermia [Unknown]
  - Paralysis [Unknown]
  - Fluid retention [Unknown]
  - Emergency care [Unknown]
  - Folate deficiency [Unknown]
  - Paranoia [Unknown]
  - Product administration interrupted [Unknown]
